FAERS Safety Report 6123003-8 (Version None)
Quarter: 2009Q1

REPORT INFORMATION
  Report Type: 
  Country: None (occurrence: None)
  Receive Date: 20090318
  Receipt Date: 20090309
  Transmission Date: 20090719
  Serious: Yes (Hospitalization)
  Sender: FDA-Public Use
  Company Number: FR-MERCK-0903USA02514

PATIENT
  Age: 82 Year
  Sex: Female

DRUGS (14)
  1. PRINIVIL [Suspect]
     Indication: HYPERTENSION
     Route: 048
     Dates: end: 20081018
  2. GLUCOPHAGE [Suspect]
     Indication: TYPE 2 DIABETES MELLITUS
     Route: 048
     Dates: end: 20081018
  3. LASIX [Suspect]
     Indication: HYPERTENSION
     Route: 048
     Dates: end: 20081018
  4. COLCHICINE [Suspect]
     Indication: GOUT
     Route: 048
     Dates: start: 20081004, end: 20081018
  5. BISOPROLOL FUMARATE [Concomitant]
     Route: 065
  6. LEVOTHYROXINE SODIUM [Concomitant]
     Route: 065
  7. ALPRAZOLAM [Concomitant]
     Route: 065
  8. SIMVASTATIN [Concomitant]
     Route: 048
  9. AMIODARONE HYDROCHLORIDE [Concomitant]
     Route: 065
  10. ALLOPURINOL [Concomitant]
     Route: 065
  11. PREVISCAN [Concomitant]
     Route: 065
  12. DAFLON (DIOSMIN) [Concomitant]
     Route: 065
  13. TOPLEXIL [Concomitant]
     Route: 065
     Dates: start: 20081004
  14. IXPRIM (ACETAMINOPHEN (+) TRAMADOL HYDROCHLORIDE) [Concomitant]
     Route: 065
     Dates: start: 20081004

REACTIONS (3)
  - DIARRHOEA [None]
  - LACTIC ACIDOSIS [None]
  - RENAL FAILURE ACUTE [None]
